FAERS Safety Report 6408909-4 (Version None)
Quarter: 2009Q4

REPORT INFORMATION
  Report Type: 
  Country: None (occurrence: None)
  Receive Date: 20091021
  Receipt Date: 20091014
  Transmission Date: 20100525
  Serious: Yes (Other)
  Sender: FDA-Public Use
  Company Number: US-MERCK-0910USA01749

PATIENT
  Sex: Female

DRUGS (6)
  1. VYTORIN [Suspect]
     Indication: BLOOD CHOLESTEROL
     Route: 048
  2. BENICAR [Concomitant]
     Route: 065
  3. NEXIUM [Concomitant]
     Route: 065
  4. VESICARE [Concomitant]
     Route: 065
  5. ZOCOR [Suspect]
     Route: 065
  6. SIMVASTATINE AUROBINDO [Suspect]
     Route: 065

REACTIONS (2)
  - ALOPECIA [None]
  - INFECTION [None]
